FAERS Safety Report 7024604-5 (Version None)
Quarter: 2010Q4

REPORT INFORMATION
  Report Type: 
  Country: None (occurrence: None)
  Receive Date: 20101001
  Receipt Date: 20100927
  Transmission Date: 20110411
  Serious: Yes (Hospitalization, Other)
  Sender: FDA-Public Use
  Company Number: JP-PFIZER INC-2010118918

PATIENT
  Age: 78 Year
  Sex: Female

DRUGS (1)
  1. ALDACTONE [Suspect]
     Dosage: 25MG, DAILY
     Route: 048
     Dates: start: 20100804, end: 20100917

REACTIONS (1)
  - PLATELET COUNT DECREASED [None]
